FAERS Safety Report 15900878 (Version 3)
Quarter: 2019Q1

REPORT INFORMATION
  Report Type: Spontaneous
  Country: US (occurrence: US)
  Receive Date: 20190201
  Receipt Date: 20190314
  Transmission Date: 20190417
  Serious: No
  Sender: FDA-Public Use
  Company Number: US-JNJFOC-20190122403

PATIENT
  Age: 28 Year
  Sex: Male
  Weight: 113.4 kg

DRUGS (1)
  1. RISPERDAL CONSTA [Suspect]
     Active Substance: RISPERIDONE
     Indication: SCHIZOPHRENIA
     Route: 030
     Dates: start: 20160315

REACTIONS (2)
  - Device leakage [Unknown]
  - Product dose omission [Unknown]

NARRATIVE: CASE EVENT DATE: 20190116
